FAERS Safety Report 5086131-4 (Version None)
Quarter: 2006Q3

REPORT INFORMATION
  Report Type: 
  Country: None (occurrence: None)
  Receive Date: 20060818
  Receipt Date: 20060802
  Transmission Date: 20061208
  Serious: Yes (Disabling, Other)
  Sender: FDA-Public Use
  Company Number: 2006052637

PATIENT
  Age: 51 Year
  Sex: Female

DRUGS (4)
  1. LIPITOR [Suspect]
     Indication: BLOOD CHOLESTEROL INCREASED
     Dosage: 10 MG (10 MG, 1 IN 1 D), ORAL
     Route: 048
     Dates: start: 20050602
  2. LEVOTHYROXINE SODIUM [Concomitant]
  3. DIXARIT           (CLONIDINE HYDROCHLORIDE) [Concomitant]
  4. FEXOFENADINE HCL [Concomitant]

REACTIONS (1)
  - MUSCLE SPASMS [None]
